FAERS Safety Report 4445088-7 (Version None)
Quarter: 2004Q3

REPORT INFORMATION
  Report Type: 
  Country: None (occurrence: None)
  Receive Date: 20040903
  Receipt Date: 20040823
  Transmission Date: 20050211
  Serious: Yes (Other)
  Sender: FDA-Public Use
  Company Number: 200414143BCC

PATIENT
  Age: 26 Year
  Sex: Female
  Weight: 65.7716 kg

DRUGS (2)
  1. PHILLIPS LIQUI-GELS (DOCUSATE SODIUM) [Suspect]
     Indication: CONSTIPATION
     Dates: start: 20040822
  2. MIGRAINE MEDICATION (NOS) [Concomitant]

REACTIONS (4)
  - ACCIDENTAL EXPOSURE [None]
  - EYE BURNS [None]
  - EYE IRRITATION [None]
  - EYE REDNESS [None]
